FAERS Safety Report 21870972 (Version 1)
Quarter: 2023Q1

REPORT INFORMATION
  Report Type: Spontaneous
  Country: US (occurrence: US)
  Receive Date: 20230117
  Receipt Date: 20230117
  Transmission Date: 20230417
  Serious: Yes (Other)
  Sender: FDA-Public Use
  Company Number: US-drreddys-LIT/USA/23/0159932

PATIENT
  Age: 43 Year
  Sex: Female

DRUGS (7)
  1. LURASIDONE [Suspect]
     Active Substance: LURASIDONE
     Indication: Bipolar disorder
  2. LURASIDONE [Suspect]
     Active Substance: LURASIDONE
     Indication: Mania
  3. OLANZAPINE [Suspect]
     Active Substance: OLANZAPINE
     Indication: Bipolar disorder
  4. OLANZAPINE [Suspect]
     Active Substance: OLANZAPINE
     Indication: Psychotic disorder
  5. OLANZAPINE [Suspect]
     Active Substance: OLANZAPINE
     Indication: Mood swings
  6. RISPERIDONE [Suspect]
     Active Substance: RISPERIDONE
     Indication: Bipolar disorder
  7. VALPROATE [Suspect]
     Active Substance: VALPROIC ACID
     Indication: Bipolar disorder

REACTIONS (5)
  - Drug reaction with eosinophilia and systemic symptoms [Unknown]
  - Catatonia [Recovered/Resolved]
  - Drug ineffective [Unknown]
  - Product use in unapproved indication [Unknown]
  - Rash [Unknown]
